FAERS Safety Report 23863270 (Version 5)
Quarter: 2024Q3

REPORT INFORMATION
  Report Type: Spontaneous
  Country: US (occurrence: US)
  Receive Date: 20240516
  Receipt Date: 20240816
  Transmission Date: 20241017
  Serious: No
  Sender: PFIZER
  Company Number: US-PFIZER INC-PV202300155816

PATIENT
  Age: 77 Year
  Sex: Female
  Weight: 63.4 kg

DRUGS (3)
  1. IBRANCE [Suspect]
     Active Substance: PALBOCICLIB
     Indication: Breast cancer female
     Dosage: 125 MG CYCLIC, 1 TABLET DAILY X21 DAYS. OFF X7 DAYS
     Route: 048
  2. IBRANCE [Suspect]
     Active Substance: PALBOCICLIB
     Dosage: 100 MG CYCLIC, 1 TABLET DAILY FOR 21 DAYS FOLLOWED BY A 7 DAY REST PERIOD.
     Route: 048
  3. IBRANCE [Suspect]
     Active Substance: PALBOCICLIB
     Dosage: 75 MG, CYCLIC, TAKE 1 TABLET BY MOUTH DAILY FOR 21 DAYS FOLLOWED BY A 7 DAY REST PERIOD.
     Route: 048
     Dates: start: 20240611

REACTIONS (7)
  - Seborrhoea [Unknown]
  - Skin exfoliation [Unknown]
  - Dry skin [Unknown]
  - Alopecia [Unknown]
  - Oral candidiasis [Unknown]
  - Nausea [Unknown]
  - Asthenia [Unknown]
